FAERS Safety Report 24410324 (Version 3)
Quarter: 2024Q4

REPORT INFORMATION
  Report Type: Spontaneous
  Country: JP (occurrence: JP)
  Receive Date: 20241008
  Receipt Date: 20241107
  Transmission Date: 20250115
  Serious: Yes (Death, Other)
  Sender: GENMAB
  Company Number: JP-GENMAB-2024-03671

PATIENT
  Age: 74 Year
  Sex: Male

DRUGS (16)
  1. EPKINLY [Suspect]
     Active Substance: EPCORITAMAB-BYSP
     Indication: Diffuse large B-cell lymphoma refractory
     Dosage: 0.16 MILLIGRAM, SINGLE
     Route: 058
     Dates: start: 20240905, end: 20240905
  2. EPKINLY [Suspect]
     Active Substance: EPCORITAMAB-BYSP
     Dosage: 0.8 MILLIGRAM, SINGLE
     Route: 058
     Dates: start: 20240912, end: 20240912
  3. EPKINLY [Suspect]
     Active Substance: EPCORITAMAB-BYSP
     Dosage: 48 MILLIGRAM, WEEKLY, FULL DOSE
     Route: 058
     Dates: start: 20240919, end: 20240926
  4. PREDNISOLONE [Concomitant]
     Active Substance: PREDNISOLONE
     Indication: Prophylaxis
     Dosage: 100 MILLIGRAM, ON DAY 1, DAY 2, DAY 3 AND DAY 4, FROM THE FIRST TO FOURTH DOSE IN CYCLE 1 OF EPKINLY
     Dates: start: 20240905, end: 20240929
  5. POLARAMINE [Concomitant]
     Active Substance: DEXCHLORPHENIRAMINE MALEATE
     Indication: Prophylaxis
     Dosage: 5 MILLIGRAM, ON DAY 1, FROM THE FIRST TO FOURTH DOSE IN CYCLE 1 OF EPKINLY ADMINISTRATION
     Dates: start: 20240905, end: 20240926
  6. ACETAMINOPHEN [Concomitant]
     Active Substance: ACETAMINOPHEN
     Indication: Prophylaxis
     Dosage: 500 MILLIGRAM, ON DAY 1, FROM THE FIRST TO FOURTH DOSE IN CYCLE 1 OF EPKINLY ADMINISTRATION
     Dates: start: 20240905, end: 20240926
  7. NESINA [Concomitant]
     Active Substance: ALOGLIPTIN BENZOATE
     Indication: Type 2 diabetes mellitus
     Dosage: 25 MILLIGRAM, DOSE PER DAY
     Route: 048
  8. PITAVASTATIN CALCIUM [Concomitant]
     Active Substance: PITAVASTATIN CALCIUM
     Indication: Dyslipidaemia
     Dosage: 0.5 MILLIGRAM, DOSE PER DAY
     Route: 048
  9. RABEPRAZOLE SODIUM [Concomitant]
     Active Substance: RABEPRAZOLE SODIUM
     Indication: Gastrointestinal disorder
     Dosage: 10 MILLIGRAM, DOSE PER DAY
     Route: 048
  10. ACYCLOVIR [Concomitant]
     Active Substance: ACYCLOVIR
     Indication: Infection
     Dosage: 200 MILLIGRAM, DOSE PER DAY
     Route: 048
  11. MIROGABALIN BESYLATE [Concomitant]
     Active Substance: MIROGABALIN BESYLATE
     Indication: Analgesic therapy
     Dosage: 5 MILLIGRAM, DOSE PER DAY
     Route: 048
  12. URSODIOL [Concomitant]
     Active Substance: URSODIOL
     Indication: Hepatic function abnormal
     Dosage: 300 MILLIGRAM, DOSE PER DAY
  13. URSODIOL [Concomitant]
     Active Substance: URSODIOL
     Indication: Dyspepsia
  14. OMEGA-3-ACID ETHYL ESTER [Concomitant]
     Active Substance: OMEGA-3-ACID ETHYL ESTERS
     Indication: Hyperlipidaemia
     Dosage: 2 GRAM, DOSE PER DAY
     Route: 048
  15. ATOVAQUONE [Concomitant]
     Active Substance: ATOVAQUONE
     Indication: Infection
     Dosage: 10 MILLIGRAM, DOSE PER DAY
     Route: 048
  16. PANTETHINE [Concomitant]
     Active Substance: PANTETHINE
     Indication: Platelet count abnormal
     Dosage: 300 MILLIGRAM, DOSE PER DAY
     Route: 048

REACTIONS (5)
  - Staphylococcal bacteraemia [Not Recovered/Not Resolved]
  - Immune effector cell-associated neurotoxicity syndrome [Not Recovered/Not Resolved]
  - Cytokine release syndrome [Recovered/Resolved]
  - Diffuse large B-cell lymphoma refractory [Fatal]
  - Platelet count decreased [Not Recovered/Not Resolved]

NARRATIVE: CASE EVENT DATE: 20240918
